FAERS Safety Report 7048562-2 (Version None)
Quarter: 2010Q4

REPORT INFORMATION
  Report Type: 
  Country: None (occurrence: None)
  Receive Date: 20101008
  Receipt Date: 20100924
  Transmission Date: 20110411
  Serious: Yes (Other)
  Sender: FDA-Public Use
  Company Number: 016120

PATIENT
  Sex: Female
  Weight: 89.9 kg

DRUGS (5)
  1. CIMZIA [Suspect]
     Indication: CROHN'S DISEASE
     Dosage: (400 MG 1X/MONTH SUBCUTANEOUS)
     Route: 058
     Dates: start: 20100601, end: 20100701
  2. ARIPIPRAZOLE [Concomitant]
  3. TRAZODONE [Concomitant]
  4. VITAMIN TAB [Concomitant]
  5. PENTASA [Concomitant]

REACTIONS (3)
  - CATARACT [None]
  - DIPLOPIA [None]
  - URINARY TRACT INFECTION [None]
